FAERS Safety Report 20664925 (Version 3)
Quarter: 2024Q4

REPORT INFORMATION
  Report Type: Spontaneous
  Country: US (occurrence: US)
  Receive Date: 20220401
  Receipt Date: 20241210
  Transmission Date: 20250114
  Serious: Yes (Life-Threatening, Hospitalization, Other)
  Sender: BRISTOL-MYERS SQUIBB COMPANY
  Company Number: US-BRISTOL-MYERS SQUIBB COMPANY-2022-011233

PATIENT
  Age: 62 Year
  Sex: Male
  Weight: 88.904 kg

DRUGS (2)
  1. REVLIMID [Suspect]
     Active Substance: LENALIDOMIDE
     Indication: Plasma cell myeloma
     Dosage: 21 DAY ON, 7 DAY OFF
     Route: 048
     Dates: start: 20220115, end: 20220304
  2. REVLIMID [Suspect]
     Active Substance: LENALIDOMIDE
     Dosage: FREQ: 21 DAYS ON 7 DAYS OFF
     Route: 048

REACTIONS (3)
  - Gastrointestinal perforation [Not Recovered/Not Resolved]
  - Perforated ulcer [Unknown]
  - Cardiac failure [Unknown]
